FAERS Safety Report 9798491 (Version 1)
Quarter: 2013Q4

REPORT INFORMATION
  Report Type: Spontaneous
  Country: BE (occurrence: None)
  Receive Date: 20131231
  Receipt Date: 20131231
  Transmission Date: 20140711
  Serious: Yes (Hospitalization)
  Sender: FDA-Public Use
  Company Number: 2013P1022176

PATIENT
  Age: 85 Year
  Sex: Male

DRUGS (1)
  1. ZOLEDRONIC ACID [Suspect]
     Indication: OSTEITIS DEFORMANS
     Dosage: 5 MG; X1; IV
     Route: 042

REACTIONS (10)
  - Malaise [None]
  - Pyrexia [None]
  - Fatigue [None]
  - Abdominal pain [None]
  - Dyspnoea [None]
  - Blood creatine phosphokinase increased [None]
  - C-reactive protein increased [None]
  - Blood lactate dehydrogenase increased [None]
  - Hypocalcaemia [None]
  - Hypophosphataemia [None]
